FAERS Safety Report 6037550-0 (Version None)
Quarter: 2009Q1

REPORT INFORMATION
  Report Type: 
  Country: None (occurrence: None)
  Receive Date: 20090114
  Receipt Date: 20090112
  Transmission Date: 20090719
  Serious: Yes (Other)
  Sender: FDA-Public Use
  Company Number: US-GILEAD-2009-0019806

PATIENT
  Sex: Female

DRUGS (17)
  1. LETAIRIS [Suspect]
     Indication: PULMONARY ARTERIAL HYPERTENSION
     Route: 048
     Dates: start: 20081119
  2. HYDROCHLOROTHIAZIDE [Concomitant]
  3. PROTONIX [Concomitant]
  4. LORAZEPAM [Concomitant]
  5. LASIX [Concomitant]
  6. ZOLOFT [Concomitant]
  7. VASOTEC [Concomitant]
  8. MAGNESIUM SULFATE [Concomitant]
  9. COUMADIN [Concomitant]
  10. DIGOXIN [Concomitant]
  11. OXYGEN [Concomitant]
  12. ASPIRIN [Concomitant]
  13. ASCORBIC ACID [Concomitant]
  14. LOPERAMIDE HCL [Concomitant]
  15. CALCIUM +D [Concomitant]
  16. DICYCLOMINE [Concomitant]
  17. REVATIO [Concomitant]

REACTIONS (2)
  - COLONIC POLYP [None]
  - LUNG DISORDER [None]
